FAERS Safety Report 25729754 (Version 4)
Quarter: 2025Q4

REPORT INFORMATION
  Report Type: Spontaneous
  Country: JP (occurrence: JP)
  Receive Date: 20250827
  Receipt Date: 20251119
  Transmission Date: 20260118
  Serious: Yes (Hospitalization, Other)
  Sender: GILEAD
  Company Number: JP-GILEAD-2025-0714835

PATIENT
  Age: 81 Year
  Sex: Female
  Weight: 42 kg

DRUGS (4)
  1. TRODELVY [Suspect]
     Active Substance: SACITUZUMAB GOVITECAN-HZIY
     Indication: Triple negative breast cancer
     Dosage: 460 MG, QD
     Route: 042
     Dates: start: 20250522, end: 20250522
  2. TRODELVY [Suspect]
     Active Substance: SACITUZUMAB GOVITECAN-HZIY
     Dosage: 345 MG, QD
     Route: 042
     Dates: start: 20250605, end: 20250605
  3. TRODELVY [Suspect]
     Active Substance: SACITUZUMAB GOVITECAN-HZIY
     Dosage: 345 MG, QD
     Route: 042
     Dates: start: 20250619, end: 20250911
  4. PEGFILGRASTIM BS [Concomitant]
     Indication: Prophylaxis
     Dosage: 3.6 MG
     Route: 058

REACTIONS (7)
  - Chest pain [Recovering/Resolving]
  - Headache [Recovering/Resolving]
  - Nausea [Recovering/Resolving]
  - Decreased appetite [Recovering/Resolving]
  - Dehydration [Recovering/Resolving]
  - Neutrophil count decreased [Recovering/Resolving]
  - Rheumatoid arthritis [Unknown]

NARRATIVE: CASE EVENT DATE: 20250524
